FAERS Safety Report 4816975-2 (Version None)
Quarter: 2005Q3

REPORT INFORMATION
  Report Type: 
  Country: None (occurrence: None)
  Receive Date: 20050929
  Receipt Date: 20050616
  Transmission Date: 20060218
  Serious: No
  Sender: FDA-Public Use
  Company Number: 05P-163-0303367

PATIENT
  Age: 68 Year
  Sex: Female
  Weight: 75.7507 kg

DRUGS (5)
  1. HUMIRA [Suspect]
     Indication: RHEUMATOID ARTHRITIS
     Dosage: 40 MG, 1 IN 2 WK, PER ORAL
     Route: 048
     Dates: start: 20040901, end: 20041001
  2. CELECOXIB [Concomitant]
  3. SULFASALAZINE [Concomitant]
  4. METHOTREXATE [Concomitant]
  5. ALENDRONATE SODIUM [Concomitant]

REACTIONS (2)
  - ASTHENIA [None]
  - PALPITATIONS [None]
